FAERS Safety Report 17243898 (Version 1)
Quarter: 2020Q1

REPORT INFORMATION
  Report Type: Spontaneous
  Country: US (occurrence: US)
  Receive Date: 20200107
  Receipt Date: 20200107
  Transmission Date: 20200409
  Serious: Yes (Hospitalization)
  Sender: FDA-Public Use
  Company Number: US-ROCHE-2346081

PATIENT
  Age: 85 Year
  Sex: Female

DRUGS (1)
  1. ACTIVASE [Suspect]
     Active Substance: ALTEPLASE
     Indication: CEREBROVASCULAR ACCIDENT
     Dosage: ONGOING: NO
     Route: 065
     Dates: start: 20190420, end: 20190420

REACTIONS (2)
  - Haemorrhage intracranial [Unknown]
  - Headache [Unknown]

NARRATIVE: CASE EVENT DATE: 20190621
